FAERS Safety Report 12854804 (Version 5)
Quarter: 2016Q4

REPORT INFORMATION
  Report Type: Report from Study
  Country: US (occurrence: US)
  Receive Date: 20161017
  Receipt Date: 20161129
  Transmission Date: 20170207
  Serious: Yes (Hospitalization, Other)
  Sender: FDA-Public Use
  Company Number: US-GILEAD-2016-0238002

PATIENT
  Age: 77 Year
  Sex: Female
  Weight: 99.77 kg

DRUGS (13)
  1. K-DUR [Concomitant]
     Active Substance: POTASSIUM CHLORIDE
     Dosage: 10 MEQ, BID
     Route: 048
  2. COLCHICINE. [Concomitant]
     Active Substance: COLCHICINE
     Dosage: 0.6 MG, PRN
  3. ASPIRIN 81 [Concomitant]
     Active Substance: ASPIRIN
     Dosage: 81 MG, QD
     Route: 048
  4. LOPRESSOR [Concomitant]
     Active Substance: METOPROLOL TARTRATE
     Dosage: 50 MG, BID
  5. LIPITOR [Concomitant]
     Active Substance: ATORVASTATIN CALCIUM
     Dosage: 80 MG, QD
  6. ALTACE [Concomitant]
     Active Substance: RAMIPRIL
     Dosage: 5 MG, BID
     Route: 048
  7. SYNTHROID [Concomitant]
     Active Substance: LEVOTHYROXINE SODIUM
     Dosage: 0.1 MG, QD
  8. NORVASC [Concomitant]
     Active Substance: AMLODIPINE BESYLATE
     Dosage: 5 MG, BID
  9. IMDUR [Concomitant]
     Active Substance: ISOSORBIDE MONONITRATE
     Dosage: 60 MG, 3 TABLETS IN THE AM 2 TABLETS IN THE PM AS DIRECTED
  10. RANOLAZINE [Suspect]
     Active Substance: RANOLAZINE
     Indication: ANGINA PECTORIS
     Dosage: 500 MG, BID
     Route: 048
     Dates: start: 2011
  11. ZYLOPRIM [Concomitant]
     Active Substance: ALLOPURINOL
     Dosage: 100 MG, QD
     Route: 048
  12. PLAVIX [Concomitant]
     Active Substance: CLOPIDOGREL BISULFATE
     Dosage: 75 MG, QD
     Route: 048
  13. LASIX [Concomitant]
     Active Substance: FUROSEMIDE
     Dosage: 40 MG, QD
     Route: 048

REACTIONS (6)
  - Lower limb fracture [Unknown]
  - Angina pectoris [Unknown]
  - Fall [Unknown]
  - Oedema peripheral [Not Recovered/Not Resolved]
  - Tibia fracture [Unknown]
  - Drug dose omission [Unknown]

NARRATIVE: CASE EVENT DATE: 2016
